FAERS Safety Report 10544781 (Version 1)
Quarter: 2014Q4

REPORT INFORMATION
  Report Type: Spontaneous
  Country: US (occurrence: None)
  Receive Date: 20141020
  Receipt Date: 20141020
  Transmission Date: 20150529
  Serious: Yes (Other)
  Sender: FDA-Public Use
  Company Number: AEGR000560

PATIENT
  Age: 48 Year
  Sex: Female
  Weight: 70.7 kg

DRUGS (16)
  1. PRILOSEC [Concomitant]
     Active Substance: OMEPRAZOLE MAGNESIUM
  2. METHSCOPOLAMINE BROMIDE. [Concomitant]
     Active Substance: METHSCOPOLAMINE BROMIDE
  3. NIACIN. [Concomitant]
     Active Substance: NIACIN
  4. JUXTAPID [Suspect]
     Active Substance: LOMITAPIDE MESYLATE
     Indication: TYPE IIA HYPERLIPIDAEMIA
     Route: 048
     Dates: start: 201406, end: 2014
  5. VITAMIN E [Concomitant]
     Active Substance: .ALPHA.-TOCOPHEROL
  6. WELLBUTRIN [Concomitant]
     Active Substance: BUPROPION HYDROCHLORIDE
  7. ASPIRIN (ACETYLSALICYLIC ACID) [Concomitant]
     Active Substance: ASPIRIN
  8. VYVANSE [Concomitant]
     Active Substance: LISDEXAMFETAMINE DIMESYLATE
  9. COENZYME Q10 [Concomitant]
     Active Substance: UBIDECARENONE
  10. NIASPAN [Concomitant]
     Active Substance: NIACIN
  11. OMEGA 3 [Concomitant]
     Active Substance: OMEGA-3 FATTY ACIDS
  12. FOLIC ACID. [Concomitant]
     Active Substance: FOLIC ACID
  13. TOPROL XL [Concomitant]
     Active Substance: METOPROLOL SUCCINATE
  14. BUDESONIDE. [Concomitant]
     Active Substance: BUDESONIDE
  15. SYNTHROID [Concomitant]
     Active Substance: LEVOTHYROXINE SODIUM
  16. LEFLUNOMIDE. [Concomitant]
     Active Substance: LEFLUNOMIDE

REACTIONS (14)
  - Insomnia [None]
  - Weight decreased [None]
  - Abdominal distension [None]
  - Abdominal pain [None]
  - Headache [None]
  - Nausea [None]
  - Hypotension [None]
  - Dyspepsia [None]
  - Abdominal discomfort [None]
  - Drug dose omission [None]
  - Contusion [None]
  - Back pain [None]
  - Fatigue [None]
  - Pain [None]

NARRATIVE: CASE EVENT DATE: 201405
